FAERS Safety Report 13063992 (Version 2)
Quarter: 2018Q2

REPORT INFORMATION
  Report Type: Spontaneous
  Country: US (occurrence: US)
  Receive Date: 20161227
  Receipt Date: 20180412
  Transmission Date: 20180711
  Serious: No
  Sender: FDA-Public Use
  Company Number: US-PFIZER INC-2016596495

PATIENT
  Sex: Female

DRUGS (1)
  1. LYRICA [Suspect]
     Active Substance: PREGABALIN
     Dosage: UNK

REACTIONS (7)
  - Pre-existing condition improved [Unknown]
  - Therapeutic response unexpected [Unknown]
  - Insomnia [Unknown]
  - Panic attack [Unknown]
  - Malaise [Unknown]
  - Nasopharyngitis [Unknown]
  - Immune system disorder [Unknown]
